FAERS Safety Report 10186372 (Version 1)
Quarter: 2014Q2

REPORT INFORMATION
  Report Type: Spontaneous
  Country: US (occurrence: US)
  Receive Date: 20140521
  Receipt Date: 20140521
  Transmission Date: 20141212
  Serious: No
  Sender: FDA-Public Use
  Company Number: US-ASTRAZENECA-2013SE92218

PATIENT
  Age: 65 Year
  Sex: Female

DRUGS (2)
  1. PULMICORT FLEXHALER [Suspect]
     Indication: WHEEZING
     Dosage: PULMICORT FLEXHALER 180MCG 2 PUFFS BID
     Route: 055
  2. PRILOSEC [Suspect]
     Indication: ANTACID THERAPY
     Route: 048

REACTIONS (7)
  - Nasopharyngitis [Unknown]
  - Sleep disorder due to general medical condition, insomnia type [Unknown]
  - Productive cough [Unknown]
  - Malaise [Unknown]
  - Cough [Unknown]
  - Wheezing [Unknown]
  - Off label use [Not Recovered/Not Resolved]
